FAERS Safety Report 15983474 (Version 2)
Quarter: 2019Q1

REPORT INFORMATION
  Report Type: Spontaneous
  Country: US (occurrence: US)
  Receive Date: 20190220
  Receipt Date: 20190222
  Transmission Date: 20190418
  Serious: No
  Sender: FDA-Public Use
  Company Number: US-SHIRE-US201905646

PATIENT
  Sex: Female

DRUGS (4)
  1. XIIDRA [Suspect]
     Active Substance: LIFITEGRAST
     Indication: CONJUNCTIVITIS
  2. LOTEMAX [Concomitant]
     Active Substance: LOTEPREDNOL ETABONATE
     Indication: PRODUCT USED FOR UNKNOWN INDICATION
  3. XIIDRA [Suspect]
     Active Substance: LIFITEGRAST
     Indication: DRY EYE
     Dosage: 1 GTT DROPS
     Route: 047
     Dates: start: 201808
  4. XIIDRA [Suspect]
     Active Substance: LIFITEGRAST
     Indication: OFF LABEL USE

REACTIONS (10)
  - Instillation site pain [Unknown]
  - Instillation site reaction [Unknown]
  - Off label use [Unknown]
  - Dry mouth [Unknown]
  - Drug effect decreased [Unknown]
  - Instillation site dryness [Unknown]
  - Instillation site pruritus [Unknown]
  - Instillation site swelling [Unknown]
  - Vision blurred [Unknown]
  - Instillation site lacrimation [Unknown]
